FAERS Safety Report 9710326 (Version 1)
Quarter: 2013Q4

REPORT INFORMATION
  Report Type: Spontaneous
  Country: US (occurrence: US)
  Receive Date: 20131126
  Receipt Date: 20131126
  Transmission Date: 20140711
  Serious: No
  Sender: FDA-Public Use
  Company Number: US-BRISTOL-MYERS SQUIBB COMPANY-18793778

PATIENT
  Age: 64 Year
  Sex: 0

DRUGS (11)
  1. BYETTA PEN DISPOSABLE [Suspect]
     Indication: DIABETES MELLITUS
     Dosage: 1DF = 10 MCG,2 MONTHS, 5 MCG, 6 MONTHS
     Route: 058
     Dates: start: 201302
  2. GLIPIZIDE [Concomitant]
  3. AGGRENOX [Concomitant]
     Dosage: 1DF = 25/200
  4. SIMVASTATIN [Concomitant]
  5. ALLOPURINOL [Concomitant]
     Dosage: 1DF = 300
  6. SPIRONOLACTONE [Concomitant]
  7. SERTRALINE [Concomitant]
  8. ATENOLOL [Concomitant]
  9. VITAMIN D [Concomitant]
  10. MULTIVITAMIN [Concomitant]
  11. POTASSIUM [Concomitant]

REACTIONS (1)
  - Weight decreased [Not Recovered/Not Resolved]
